FAERS Safety Report 10313691 (Version 1)
Quarter: 2014Q3

REPORT INFORMATION
  Report Type: Spontaneous
  Country: SE (occurrence: SE)
  Receive Date: 20140718
  Receipt Date: 20140718
  Transmission Date: 20150326
  Serious: Yes (Hospitalization, Other)
  Sender: FDA-Public Use
  Company Number: SE-PERRIGO-14SE006865

PATIENT
  Age: 30 Year
  Sex: Female

DRUGS (2)
  1. POTASSIUM CHLORIDE RX 10 MEQ (750MG) 5S7 [Suspect]
     Active Substance: POTASSIUM CHLORIDE
     Indication: SUICIDAL IDEATION
  2. POTASSIUM CHLORIDE RX 10 MEQ (750MG) 5S7 [Suspect]
     Active Substance: POTASSIUM CHLORIDE
     Indication: INTENTIONAL OVERDOSE
     Dosage: 225 G, SINGLE
     Route: 048

REACTIONS (9)
  - Pulmonary embolism [Recovered/Resolved]
  - Tachycardia [Recovered/Resolved]
  - Cardiovascular function test abnormal [Recovered/Resolved]
  - Intentional overdose [Recovered/Resolved]
  - Bezoar [Recovered/Resolved]
  - Hyperkalaemia [Recovered/Resolved]
  - Duodenal stenosis [Recovered/Resolved]
  - Gastrointestinal oedema [Recovered/Resolved]
  - Gastric mucosa erythema [Recovered/Resolved]
